FAERS Safety Report 19212907 (Version 1)
Quarter: 2021Q2

REPORT INFORMATION
  Report Type: Spontaneous
  Country: FR (occurrence: FR)
  Receive Date: 20210504
  Receipt Date: 20210504
  Transmission Date: 20210717
  Serious: Yes (Death, Hospitalization)
  Sender: FDA-Public Use
  Company Number: FR-ROCHE-2820823

PATIENT
  Age: 90 Year
  Sex: Female
  Weight: 38 kg

DRUGS (2)
  1. MORPHINE [Concomitant]
     Active Substance: MORPHINE
     Route: 058
  2. VALIUM [Suspect]
     Active Substance: DIAZEPAM
     Indication: AGITATION
     Dosage: ON 10?APR?2021 IN THE EVENING VALIUM 10 MG AT 9 P.M AND AGAIN AT 2 A.M DURING THE NIGHT?VALIUM AMPOU
     Route: 065
     Dates: start: 20210410

REACTIONS (4)
  - Off label use [Unknown]
  - Coma [Not Recovered/Not Resolved]
  - Death [Fatal]
  - Heart rate increased [Not Recovered/Not Resolved]

NARRATIVE: CASE EVENT DATE: 20210410
